FAERS Safety Report 7659496-4 (Version None)
Quarter: 2011Q3

REPORT INFORMATION
  Report Type: 
  Country: None (occurrence: None)
  Receive Date: 20110805
  Receipt Date: 20110725
  Transmission Date: 20111222
  Serious: Yes (Disabling, Other)
  Sender: FDA-Public Use
  Company Number: US-CELGENEUS-163-21880-11051894

PATIENT
  Sex: Male

DRUGS (2)
  1. REVLIMID [Suspect]
     Indication: CASTLEMAN'S DISEASE
     Dosage: 15 MILLIGRAM
     Route: 048
  2. PREDNISONE [Concomitant]
     Indication: CASTLEMAN'S DISEASE
     Dosage: 5 MILLIGRAM
     Route: 048

REACTIONS (2)
  - TRACHEAL STENOSIS [None]
  - BRONCHOSTENOSIS [None]
